FAERS Safety Report 7241619-2 (Version None)
Quarter: 2011Q1

REPORT INFORMATION
  Report Type: 
  Country: None (occurrence: None)
  Receive Date: 20110120
  Receipt Date: 20110120
  Transmission Date: 20110831
  Serious: Yes (Hospitalization)
  Sender: FDA-Public Use
  Company Number: None

PATIENT
  Sex: Female

DRUGS (1)
  1. JANTOVEN [Suspect]
     Indication: FACTOR V LEIDEN MUTATION
     Dosage: 6MG DAILY ORAL
     Route: 048
     Dates: start: 20090611

REACTIONS (4)
  - TOTAL LUNG CAPACITY DECREASED [None]
  - DYSPNOEA [None]
  - PULMONARY EMBOLISM [None]
  - CHEST PAIN [None]
